FAERS Safety Report 24426577 (Version 2)
Quarter: 2024Q4

REPORT INFORMATION
  Report Type: Report from Study
  Country: US (occurrence: US)
  Receive Date: 20241011
  Receipt Date: 20241209
  Transmission Date: 20250115
  Serious: No
  Sender: BIOVITRUM
  Company Number: US-BIOVITRUM-2024-US-012655

PATIENT
  Age: 59 Year
  Sex: Female

DRUGS (1)
  1. DOPTELET [Suspect]
     Active Substance: AVATROMBOPAG MALEATE
     Indication: Immune thrombocytopenia
     Dosage: DAILY
     Route: 048
     Dates: start: 20240829

REACTIONS (8)
  - Arthralgia [Unknown]
  - Flatulence [Unknown]
  - Alopecia [Unknown]
  - Drug ineffective [Unknown]
  - Platelet count decreased [Unknown]
  - Rash [Unknown]
  - Dyspepsia [Unknown]
  - Parosmia [Unknown]
